FAERS Safety Report 6807156-1 (Version None)
Quarter: 2010Q2

REPORT INFORMATION
  Report Type: 
  Country: None (occurrence: None)
  Receive Date: 20100629
  Receipt Date: 20080718
  Transmission Date: 20101027
  Serious: No
  Sender: FDA-Public Use
  Company Number: US-PFIZER INC-2008055159

PATIENT
  Sex: Female
  Weight: 78.181 kg

DRUGS (11)
  1. ZYVOX [Suspect]
     Indication: STAPHYLOCOCCAL INFECTION
     Dates: start: 20080613
  2. ALISKIREN [Concomitant]
  3. MONTELUKAST SODIUM [Concomitant]
  4. PREMARIN [Concomitant]
  5. MIRAPEX [Concomitant]
  6. COUMADIN [Concomitant]
  7. DYAZIDE [Concomitant]
  8. DILTIAZEM [Concomitant]
  9. VESICARE [Concomitant]
  10. VITAMINS [Concomitant]
  11. FLOVENT [Concomitant]

REACTIONS (5)
  - DIZZINESS [None]
  - HEART RATE INCREASED [None]
  - MEDICATION ERROR [None]
  - NAUSEA [None]
  - PLATELET COUNT DECREASED [None]
